APPROVED DRUG PRODUCT: ANNOVERA
Active Ingredient: ETHINYL ESTRADIOL; SEGESTERONE ACETATE
Strength: 0.013MG/24HR;0.15MG/24HR
Dosage Form/Route: RING;VAGINAL
Application: N209627 | Product #001
Applicant: MAYNE PHARMA LLC
Approved: Aug 10, 2018 | RLD: Yes | RS: Yes | Type: RX

PATENTS:
Patent 10632066 | Expires: Feb 1, 2039
Patent 10780047 | Expires: Feb 1, 2039
Patent 10780047 | Expires: Feb 1, 2039
Patent 10632066 | Expires: Feb 1, 2039
Patent 10765628 | Expires: Feb 1, 2039
Patent 10765628 | Expires: Feb 1, 2039
Patent 11850251 | Expires: Jun 21, 2039
Patent 11529308 | Expires: Jun 21, 2039
Patent 10918649 | Expires: Jun 21, 2039
Patent 10925882 | Expires: Jun 21, 2039
Patent 10940157 | Expires: Jun 21, 2039
Patent 12303518 | Expires: Jun 21, 2039